FAERS Safety Report 13085326 (Version 2)
Quarter: 2017Q1

REPORT INFORMATION
  Report Type: Spontaneous
  Country: BR (occurrence: BR)
  Receive Date: 20170104
  Receipt Date: 20170113
  Transmission Date: 20170428
  Serious: Yes (Other)
  Sender: FDA-Public Use
  Company Number: BR-PFIZER INC-2017001762

PATIENT
  Age: 43 Year
  Sex: Female

DRUGS (4)
  1. TECNOMET /00113801/ [Concomitant]
     Active Substance: METHOTREXATE
     Indication: RHEUMATOID ARTHRITIS
     Dosage: 5 DF, WEEKLY, 12.5MG PER WEEK
     Dates: start: 201505
  2. XELJANZ [Suspect]
     Active Substance: TOFACITINIB CITRATE
     Indication: RHEUMATOID ARTHRITIS
     Dosage: 2 DF, DAILY
     Route: 048
     Dates: start: 201611
  3. FOLIC ACID. [Concomitant]
     Active Substance: FOLIC ACID
     Dosage: UNK
     Dates: start: 201505
  4. PRELONE [Concomitant]
     Active Substance: PREDNISOLONE
     Dosage: UNK
     Dates: start: 201605

REACTIONS (10)
  - Migraine [Recovering/Resolving]
  - Depression [Recovering/Resolving]
  - Multiple sclerosis [Unknown]
  - Apathy [Recovering/Resolving]
  - Malaise [Recovered/Resolved]
  - Dizziness [Recovering/Resolving]
  - Asthenia [Recovered/Resolved]
  - Paraesthesia [Recovering/Resolving]
  - Aura [Recovering/Resolving]
  - Hypoaesthesia [Recovering/Resolving]

NARRATIVE: CASE EVENT DATE: 201611
